FAERS Safety Report 24453530 (Version 2)
Quarter: 2024Q4

REPORT INFORMATION
  Report Type: Report from Study
  Country: ZA (occurrence: ZA)
  Receive Date: 20241017
  Receipt Date: 20241018
  Transmission Date: 20250115
  Serious: No
  Sender: ROCHE
  Company Number: ZA-ROCHE-3389503

PATIENT
  Age: 48 Year
  Sex: Female

DRUGS (2)
  1. RITUXIMAB [Suspect]
     Active Substance: RITUXIMAB
     Indication: Myasthenia gravis
     Dosage: THERE AFTER EVERY 6MONTHS
     Route: 041
  2. RITUXIMAB [Suspect]
     Active Substance: RITUXIMAB
     Indication: Rheumatoid arthritis

REACTIONS (4)
  - Aspartate aminotransferase increased [Unknown]
  - Pain [Unknown]
  - Off label use [Unknown]
  - Myasthenia gravis [Unknown]

NARRATIVE: CASE EVENT DATE: 20230705
